FAERS Safety Report 11937077 (Version 1)
Quarter: 2016Q1

REPORT INFORMATION
  Report Type: Spontaneous
  Country: US (occurrence: US)
  Receive Date: 20160121
  Receipt Date: 20160121
  Transmission Date: 20160526
  Serious: Yes (Hospitalization)
  Sender: FDA-Public Use
  Company Number: US-ACTELION-A-NJ2016-129989

PATIENT
  Age: 52 Year
  Sex: Female

DRUGS (12)
  1. BUMETANIDE. [Concomitant]
     Active Substance: BUMETANIDE
  2. SPIRONOLACTONE. [Concomitant]
     Active Substance: SPIRONOLACTONE
  3. METOLAZONE. [Concomitant]
     Active Substance: METOLAZONE
  4. TYVASO [Concomitant]
     Active Substance: TREPROSTINIL
  5. POTASSIUM [Concomitant]
     Active Substance: POTASSIUM
  6. BENADRYL [Concomitant]
     Active Substance: DIPHENHYDRAMINE HYDROCHLORIDE
  7. OPSUMIT [Suspect]
     Active Substance: MACITENTAN
     Indication: PULMONARY ARTERIAL HYPERTENSION
     Dosage: 10 MG, UNK
     Route: 048
     Dates: start: 20141028
  8. METHOTREXATE [Concomitant]
     Active Substance: METHOTREXATE
  9. QVAR [Concomitant]
     Active Substance: BECLOMETHASONE DIPROPIONATE
  10. ADCIRCA [Concomitant]
     Active Substance: TADALAFIL
  11. AMLODIPINE BESILATE [Concomitant]
     Active Substance: AMLODIPINE BESYLATE
  12. ALBUTEROL SULFATE. [Concomitant]
     Active Substance: ALBUTEROL SULFATE

REACTIONS (3)
  - Adenoviral upper respiratory infection [Recovering/Resolving]
  - Cough [Recovering/Resolving]
  - Balloon atrial septostomy [Recovering/Resolving]

NARRATIVE: CASE EVENT DATE: 20151224
